APPROVED DRUG PRODUCT: DEXRAZOXANE HYDROCHLORIDE
Active Ingredient: DEXRAZOXANE HYDROCHLORIDE
Strength: EQ 250MG BASE/VIAL
Dosage Form/Route: INJECTABLE;INJECTION
Application: A076068 | Product #001 | TE Code: AP
Applicant: HIKMA PHARMACEUTICALS USA INC
Approved: Sep 28, 2004 | RLD: No | RS: No | Type: RX